FAERS Safety Report 25136582 (Version 3)
Quarter: 2025Q2

REPORT INFORMATION
  Report Type: Report from Study
  Country: ES (occurrence: ES)
  Receive Date: 20250328
  Receipt Date: 20250511
  Transmission Date: 20250717
  Serious: Yes (Other)
  Sender: ABBVIE
  Company Number: ES-ABBVIE-6198054

PATIENT
  Age: 63 Year
  Sex: Male

DRUGS (7)
  1. FOSCARBIDOPA\FOSLEVODOPA [Suspect]
     Active Substance: FOSCARBIDOPA\FOSLEVODOPA
     Indication: Parkinson^s disease
     Route: 058
     Dates: start: 20240522
  2. FOSCARBIDOPA\FOSLEVODOPA [Suspect]
     Active Substance: FOSCARBIDOPA\FOSLEVODOPA
     Route: 058
  3. CARBIDOPA\LEVODOPA [Concomitant]
     Active Substance: CARBIDOPA\LEVODOPA
     Indication: Parkinson^s disease
     Route: 048
     Dates: start: 202502
  4. Deprax [Concomitant]
     Indication: Depression
     Route: 048
  5. RIVASTIGMINE [Concomitant]
     Active Substance: RIVASTIGMINE
     Indication: Cognitive disorder
     Route: 023
     Dates: start: 202412
  6. QUETIAPINE [Concomitant]
     Active Substance: QUETIAPINE
     Indication: Hallucination
     Route: 048
  7. QUETIAPINE [Concomitant]
     Active Substance: QUETIAPINE
     Indication: Hallucination
     Dosage: FOR ONE WEEK
     Dates: start: 20250415

REACTIONS (8)
  - Craniocerebral injury [Recovered/Resolved]
  - Fall [Recovered/Resolved]
  - Freezing phenomenon [Unknown]
  - On and off phenomenon [Recovering/Resolving]
  - Anxiety [Recovered/Resolved]
  - Hypotension [Recovered/Resolved]
  - Movement disorder [Unknown]
  - Aphasia [Unknown]

NARRATIVE: CASE EVENT DATE: 20250315
